FAERS Safety Report 7425104-0 (Version None)
Quarter: 2011Q2

REPORT INFORMATION
  Report Type: 
  Country: None (occurrence: None)
  Receive Date: 20110420
  Receipt Date: 20110411
  Transmission Date: 20111010
  Serious: Yes (Death, Hospitalization)
  Sender: FDA-Public Use
  Company Number: US-BIOGENIDEC-2011BI006616

PATIENT
  Age: 75 Year
  Sex: Male

DRUGS (3)
  1. AVONEX [Suspect]
     Route: 030
     Dates: start: 19990701, end: 20030701
  2. AVONEX [Suspect]
     Indication: MULTIPLE SCLEROSIS
     Route: 030
     Dates: start: 20040501, end: 20110407
  3. AVONEX [Suspect]
     Route: 030
     Dates: start: 20030801, end: 20040401

REACTIONS (7)
  - ANEURYSM RUPTURED [None]
  - PNEUMONIA [None]
  - CARDIAC ANEURYSM [None]
  - POST PROCEDURAL HAEMORRHAGE [None]
  - APHAGIA [None]
  - POST PROCEDURAL COMPLICATION [None]
  - CEREBROVASCULAR ACCIDENT [None]
